FAERS Safety Report 25466852 (Version 1)
Quarter: 2025Q2

REPORT INFORMATION
  Report Type: Spontaneous
  Country: CN (occurrence: CN)
  Receive Date: 20250623
  Receipt Date: 20250623
  Transmission Date: 20250716
  Serious: Yes (Other)
  Sender: ROCHE
  Company Number: CN-ROCHE-10000315219

PATIENT
  Sex: Male

DRUGS (8)
  1. ALECTINIB [Suspect]
     Active Substance: ALECTINIB
     Indication: Lung cancer metastatic
     Route: 065
  2. ALECTINIB [Suspect]
     Active Substance: ALECTINIB
     Indication: Lung cancer metastatic
  3. ALECTINIB [Suspect]
     Active Substance: ALECTINIB
     Indication: Lung cancer metastatic
  4. CRIZOTINIB [Concomitant]
     Active Substance: CRIZOTINIB
  5. bevatinib [Concomitant]
     Dates: start: 202503
  6. LORLATINIB [Concomitant]
     Active Substance: LORLATINIB
  7. PEMETREXED [Concomitant]
     Active Substance: PEMETREXED
     Dates: start: 202503
  8. CARBOPLATIN [Concomitant]
     Active Substance: CARBOPLATIN
     Dates: start: 202503

REACTIONS (3)
  - Drug resistance [Unknown]
  - Weight decreased [Unknown]
  - Metastases to liver [Unknown]

NARRATIVE: CASE EVENT DATE: 20240901
